FAERS Safety Report 5645288-4 (Version None)
Quarter: 2008Q1

REPORT INFORMATION
  Report Type: 
  Country: None (occurrence: None)
  Receive Date: 20080229
  Receipt Date: 20080221
  Transmission Date: 20080703
  Serious: Yes (Other)
  Sender: FDA-Public Use
  Company Number: JP-ASTRAZENECA-2008AP01374

PATIENT
  Age: 65 Year
  Sex: Male

DRUGS (3)
  1. CASODEX [Suspect]
     Indication: PROSTATE CANCER
     Route: 048
     Dates: start: 20070523, end: 20080131
  2. CASODEX [Suspect]
     Route: 048
     Dates: start: 20080214
  3. LEUPLIN SR [Concomitant]
     Indication: PROSTATE CANCER
     Route: 058
     Dates: start: 20070523

REACTIONS (2)
  - BLOOD GLUCOSE INCREASED [None]
  - THIRST [None]
